FAERS Safety Report 23326865 (Version 1)
Quarter: 2023Q4

REPORT INFORMATION
  Report Type: Spontaneous
  Country: US (occurrence: US)
  Receive Date: 20231221
  Receipt Date: 20231221
  Transmission Date: 20240109
  Serious: Yes (Other)
  Sender: FDA-Public Use
  Company Number: US-ELI_LILLY_AND_COMPANY-US202312009237

PATIENT
  Age: 57 Year
  Sex: Female

DRUGS (2)
  1. HUMULIN N [Suspect]
     Active Substance: INSULIN HUMAN
     Indication: Type 2 diabetes mellitus
     Dosage: 35U IN THE MORNING AND 15U IN THE NIGHT UPON SLIDING SCALE
     Route: 065
     Dates: start: 2020
  2. HUMALOG [Suspect]
     Active Substance: INSULIN LISPRO
     Indication: Type 2 diabetes mellitus
     Dosage: UNK UNK, UNKNOWN
     Route: 065

REACTIONS (7)
  - Renal failure [Recovered/Resolved]
  - Hepatic failure [Recovered/Resolved]
  - Hepatic cirrhosis [Recovered/Resolved]
  - Non-alcoholic fatty liver [Recovered/Resolved]
  - Ammonia increased [Recovered/Resolved]
  - COVID-19 [Recovered/Resolved]
  - Fluid retention [Recovered/Resolved]

NARRATIVE: CASE EVENT DATE: 20200801
